FAERS Safety Report 8920121 (Version 1)
Quarter: 2012Q4

REPORT INFORMATION
  Report Type: 
  Country: FR (occurrence: FR)
  Receive Date: 20121122
  Receipt Date: 20121122
  Transmission Date: 20130627
  Serious: Yes (Disabling)
  Sender: FDA-Public Use
  Company Number: FR-ROCHE-1151149

PATIENT
  Sex: Male
  Weight: 74 kg

DRUGS (3)
  1. AVASTIN [Suspect]
     Indication: RECTAL CANCER METASTATIC
     Route: 042
     Dates: start: 20111214, end: 20120308
  2. OXALIPLATIN [Concomitant]
     Indication: RECTAL CANCER METASTATIC
     Route: 042
     Dates: start: 20111202, end: 20120308
  3. 5-FU [Concomitant]
     Indication: RECTAL CANCER METASTATIC
     Route: 042
     Dates: start: 20111202, end: 20120904

REACTIONS (2)
  - Anastomotic fistula [Not Recovered/Not Resolved]
  - Pelvic abscess [Not Recovered/Not Resolved]
